FAERS Safety Report 9131253 (Version 1)
Quarter: 2013Q1

REPORT INFORMATION
  Report Type: Spontaneous
  Country: US (occurrence: US)
  Receive Date: 20130301
  Receipt Date: 20130301
  Transmission Date: 20140127
  Serious: No
  Sender: FDA-Public Use
  Company Number: US-B.I. PHARMACEUTICALS,INC./RIDGEFIELD-2013-BI-05038BP

PATIENT
  Age: 8 Decade
  Sex: Female

DRUGS (3)
  1. PRADAXA [Suspect]
     Indication: CEREBROVASCULAR ACCIDENT PROPHYLAXIS
     Dosage: 300 MG
     Route: 048
     Dates: start: 2012, end: 201302
  2. PRADAXA [Suspect]
     Indication: ATRIAL FIBRILLATION
  3. ANTIARRHYTHMIC [Concomitant]

REACTIONS (1)
  - Dyspnoea [Unknown]
